FAERS Safety Report 7673370-9 (Version None)
Quarter: 2011Q3

REPORT INFORMATION
  Report Type: 
  Country: None (occurrence: None)
  Receive Date: 20110804
  Receipt Date: 20110720
  Transmission Date: 20111222
  Serious: Yes (Hospitalization, Other)
  Sender: FDA-Public Use
  Company Number: 2011MA009193

PATIENT
  Age: 42 Year
  Sex: Male

DRUGS (3)
  1. FLUOXETINE [Suspect]
     Indication: OBSESSIVE-COMPULSIVE DISORDER
     Dosage: 80 MG, QD,
  2. QUETIAPINE [Concomitant]
  3. ARIPIPRAZOLE [Suspect]
     Indication: OBSESSIVE-COMPULSIVE DISORDER
     Dosage: 20 MG, QD,

REACTIONS (7)
  - NO THERAPEUTIC RESPONSE [None]
  - PSYCHOTIC DISORDER [None]
  - HALLUCINATION [None]
  - CONDITION AGGRAVATED [None]
  - NEUTROPHIL COUNT DECREASED [None]
  - LEUKOPENIA [None]
  - OBSESSIVE-COMPULSIVE DISORDER [None]
